FAERS Safety Report 16354212 (Version 1)
Quarter: 2019Q2

REPORT INFORMATION
  Report Type: Report from Study
  Country: US (occurrence: US)
  Receive Date: 20190524
  Receipt Date: 20190524
  Transmission Date: 20190711
  Serious: Yes (Death, Hospitalization)
  Sender: FDA-Public Use
  Company Number: US-ACTELION-A-NJ2017-158224

PATIENT
  Age: 73 Year
  Sex: Female
  Weight: 49.89 kg

DRUGS (5)
  1. OPSUMIT [Suspect]
     Active Substance: MACITENTAN
     Indication: PULMONARY ARTERIAL HYPERTENSION
     Dosage: 10 MG, QD
     Route: 048
  2. ADCIRCA [Concomitant]
     Active Substance: TADALAFIL
  3. UPTRAVI [Concomitant]
     Active Substance: SELEXIPAG
  4. TYVASO [Concomitant]
     Active Substance: TREPROSTINIL
     Dosage: 14 BREATHS INHALED, QID
  5. LETAIRIS [Concomitant]
     Active Substance: AMBRISENTAN

REACTIONS (21)
  - Dyspnoea exertional [Unknown]
  - Disease progression [Unknown]
  - Headache [Unknown]
  - Blood potassium decreased [Unknown]
  - Fluid retention [Unknown]
  - Diarrhoea [Unknown]
  - Blood folate decreased [Unknown]
  - Feeling abnormal [Unknown]
  - Haemoglobin decreased [Unknown]
  - Pain in extremity [Unknown]
  - Syncope [Unknown]
  - Malaise [Unknown]
  - Hypotension [Unknown]
  - Pulmonary hypertension [Unknown]
  - Myocardial infarction [Fatal]
  - Pain [Unknown]
  - Dizziness [Unknown]
  - Loss of consciousness [Unknown]
  - Peripheral swelling [Unknown]
  - Pain in jaw [Unknown]
  - Contusion [Unknown]

NARRATIVE: CASE EVENT DATE: 20180521
